FAERS Safety Report 15385169 (Version 1)
Quarter: 2018Q3

REPORT INFORMATION
  Report Type: Report from Study
  Country: MX (occurrence: MX)
  Receive Date: 20180914
  Receipt Date: 20180914
  Transmission Date: 20181010
  Serious: Yes (Other)
  Sender: FDA-Public Use
  Company Number: PHHY2017MX170911

PATIENT
  Age: 70 Year
  Sex: Female
  Weight: 82 kg

DRUGS (2)
  1. EXFORGE HCT [Suspect]
     Active Substance: AMLODIPINE BESYLATE\HYDROCHLOROTHIAZIDE\VALSARTAN
     Indication: HYPERTENSION
     Dosage: 2 DF, (AMLODIPINE 5 MG, HYDROCHLOROTHIAZIDE 12.5 MG AND VALSARTAN 160 MG), QD
     Route: 048
  2. EXFORGE HCT [Suspect]
     Active Substance: AMLODIPINE BESYLATE\HYDROCHLOROTHIAZIDE\VALSARTAN
     Dosage: 1 DF (AMLODIPINE 5 MG, HYDROCHLOROTHIAZIDE 12.5 MG, VALSARTAN 160 MG), UNK
     Route: 065

REACTIONS (6)
  - Headache [Not Recovered/Not Resolved]
  - Thrombosis [Unknown]
  - Dizziness [Not Recovered/Not Resolved]
  - Embolism [Recovered/Resolved]
  - Inappropriate schedule of drug administration [Not Recovered/Not Resolved]
  - Infarction [Recovered/Resolved]

NARRATIVE: CASE EVENT DATE: 201706
